FAERS Safety Report 5156034-5 (Version None)
Quarter: 2006Q4

REPORT INFORMATION
  Report Type: 
  Country: None (occurrence: None)
  Receive Date: 20061122
  Receipt Date: 20061117
  Transmission Date: 20070319
  Serious: Yes (Life-Threatening, Hospitalization, Disabling, Other)
  Sender: FDA-Public Use
  Company Number: JP-AVENTIS-200613625JP

PATIENT
  Sex: Male

DRUGS (4)
  1. TAXOTERE [Suspect]
     Route: 041
     Dates: start: 20061108
  2. TS-1 [Concomitant]
     Dates: start: 20061108, end: 20061115
  3. MEDICON                            /00048102/ [Concomitant]
  4. METHYCOBAL                         /00056201/ [Concomitant]

REACTIONS (1)
  - CEREBRAL INFARCTION [None]
